FAERS Safety Report 4879267-1 (Version None)
Quarter: 2006Q1

REPORT INFORMATION
  Report Type: 
  Country: None (occurrence: None)
  Receive Date: 20060112
  Receipt Date: 20050921
  Transmission Date: 20060701
  Serious: Yes (Hospitalization)
  Sender: FDA-Public Use
  Company Number: US-MERCK-0509USA03126

PATIENT
  Age: 47 Year
  Sex: Male
  Weight: 117 kg

DRUGS (9)
  1. VIOXX [Suspect]
     Indication: JOINT STIFFNESS
     Route: 048
     Dates: start: 20010301, end: 20030909
  2. VIOXX [Suspect]
     Route: 048
     Dates: start: 20010301, end: 20030909
  3. ALEVE [Concomitant]
     Route: 065
  4. ACETAMINOPHEN [Concomitant]
     Route: 065
  5. CELEXA [Suspect]
     Route: 065
  6. ALLOPURINOL [Concomitant]
     Route: 065
  7. FOSAMAX [Concomitant]
     Route: 048
  8. VICODIN [Concomitant]
     Route: 065
  9. PREVACID [Concomitant]
     Route: 065

REACTIONS (14)
  - CHEST PAIN [None]
  - CORONARY ARTERY DISEASE [None]
  - DERMATITIS CONTACT [None]
  - DILATATION ATRIAL [None]
  - EYE SWELLING [None]
  - GASTROOESOPHAGEAL REFLUX DISEASE [None]
  - LIP DISORDER [None]
  - MITRAL VALVE INCOMPETENCE [None]
  - MUSCULOSKELETAL DISCOMFORT [None]
  - MYOCARDIAL INFARCTION [None]
  - MYOCARDIAL ISCHAEMIA [None]
  - NECK PAIN [None]
  - OEDEMA PERIPHERAL [None]
  - SKIN DISORDER [None]
